FAERS Safety Report 14819802 (Version 3)
Quarter: 2018Q3

REPORT INFORMATION
  Report Type: Report from Study
  Country: DE (occurrence: DE)
  Receive Date: 20180427
  Receipt Date: 20180706
  Transmission Date: 20181010
  Serious: Yes (Hospitalization)
  Sender: FDA-Public Use
  Company Number: DE-JNJFOC-20170115722

PATIENT
  Age: 68 Year
  Sex: Female

DRUGS (2)
  1. SIMPONI [Suspect]
     Active Substance: GOLIMUMAB
     Indication: RHEUMATOID ARTHRITIS
     Route: 058
     Dates: start: 20151130
  2. PREDNISOLONE. [Concomitant]
     Active Substance: PREDNISOLONE
     Indication: RHEUMATOID ARTHRITIS
     Route: 065

REACTIONS (2)
  - Arthritis [Recovered/Resolved]
  - Cast application [Unknown]

NARRATIVE: CASE EVENT DATE: 20160918
